FAERS Safety Report 14524684 (Version 1)
Quarter: 2018Q1

REPORT INFORMATION
  Report Type: Spontaneous
  Country: US (occurrence: US)
  Receive Date: 20180210
  Receipt Date: 20180210
  Transmission Date: 20180509
  Serious: Yes (Hospitalization)
  Sender: FDA-Public Use
  Company Number: None

PATIENT
  Age: 60 Year
  Sex: Male

DRUGS (17)
  1. MOXIFLOXACIN. [Concomitant]
     Active Substance: MOXIFLOXACIN
  2. LETAIRIS [Concomitant]
     Active Substance: AMBRISENTAN
  3. INSULIN [Concomitant]
     Active Substance: INSULIN NOS
  4. PROLENSA [Concomitant]
     Active Substance: BROMFENAC SODIUM
  5. SOFTCLIX [Concomitant]
  6. ADCIRCA [Suspect]
     Active Substance: TADALAFIL
     Indication: PULMONARY ARTERIAL HYPERTENSION
     Dosage: 40MG QPM PO
     Route: 048
     Dates: start: 201701
  7. LANTUS [Concomitant]
     Active Substance: INSULIN GLARGINE
  8. ESCITALOPRAM [Concomitant]
     Active Substance: ESCITALOPRAM OXALATE
  9. DUREZOL [Concomitant]
     Active Substance: DIFLUPREDNATE
  10. IPRATROPIUM/ SOL ALBUTEROL [Concomitant]
     Active Substance: ALBUTEROL\IPRATROPIUM BROMIDE
  11. PANTOPRAZOLE [Concomitant]
     Active Substance: PANTOPRAZOLE
  12. LANSOPRAZOLE. [Concomitant]
     Active Substance: LANSOPRAZOLE
  13. TORSEMIDE. [Concomitant]
     Active Substance: TORSEMIDE
  14. PROPRANOLOL [Concomitant]
     Active Substance: PROPRANOLOL HYDROCHLORIDE
  15. POTASSIUM CHLORIDE. [Concomitant]
     Active Substance: POTASSIUM CHLORIDE
  16. GABAPENTIN. [Concomitant]
     Active Substance: GABAPENTIN
  17. HUMALOG [Concomitant]
     Active Substance: INSULIN LISPRO

REACTIONS (2)
  - Drug dose omission [None]
  - Hospitalisation [None]

NARRATIVE: CASE EVENT DATE: 201802
